FAERS Safety Report 9547740 (Version 1)
Quarter: 2013Q3

REPORT INFORMATION
  Report Type: Report from Study
  Country: FR (occurrence: FR)
  Receive Date: 20130924
  Receipt Date: 20130924
  Transmission Date: 20140515
  Serious: Yes (Other)
  Sender: FDA-Public Use
  Company Number: FR-ASTELLAS-2013EU007975

PATIENT
  Age: 50 Year
  Sex: Female

DRUGS (10)
  1. ADVAGRAF [Suspect]
     Indication: IMMUNOSUPPRESSION
     Dosage: UNK
     Route: 065
     Dates: start: 20130711
  2. CELLCEPT                           /01275102/ [Concomitant]
     Indication: IMMUNOSUPPRESSION
     Dosage: UNK
     Route: 065
     Dates: start: 20130711
  3. CORTANCYL [Concomitant]
     Indication: PROPHYLAXIS AGAINST TRANSPLANT REJECTION
     Dosage: UNK
     Route: 065
     Dates: start: 20130711
  4. INEXIUM                            /01479303/ [Concomitant]
     Indication: GASTROOESOPHAGEAL REFLUX DISEASE
     Dosage: UNK
     Route: 065
     Dates: start: 20130711
  5. BACTRIM [Concomitant]
     Indication: INFECTION PROPHYLAXIS
     Dosage: UNK
     Route: 065
     Dates: start: 20130718
  6. FOLINORAL [Concomitant]
     Indication: ANAEMIA PROPHYLAXIS
     Dosage: UNK
     Route: 065
     Dates: start: 20130718
  7. UVEDOSE [Concomitant]
     Indication: VITAMIN D DEFICIENCY
     Dosage: UNK
     Route: 065
     Dates: start: 20130719
  8. ARANESP [Concomitant]
     Indication: ANAEMIA
     Dosage: UNK
     Route: 065
     Dates: start: 20130722
  9. TEMERIT [Concomitant]
     Indication: HYPERTENSION
     Dosage: UNK
     Route: 065
  10. DIFFU-K [Concomitant]
     Indication: HYPOKALAEMIA
     Dosage: UNK
     Route: 065

REACTIONS (1)
  - Complications of transplanted kidney [Not Recovered/Not Resolved]
